FAERS Safety Report 6327741-3 (Version None)
Quarter: 2009Q3

REPORT INFORMATION
  Report Type: 
  Country: None (occurrence: None)
  Receive Date: 20090824
  Receipt Date: 20090814
  Transmission Date: 20100115
  Serious: Yes (Death)
  Sender: FDA-Public Use
  Company Number: 2009AL002601

PATIENT
  Sex: Female

DRUGS (29)
  1. DIGOXIN [Suspect]
     Indication: CARDIAC DISORDER
     Dosage: 0.125MG, DAILY, PO; 0.250MG, PO
     Route: 048
  2. BUMETANIDE [Concomitant]
  3. WARFARIN SODIUM [Concomitant]
  4. CYCLOBENZAPRINE [Concomitant]
  5. CLORAZEPATE DIPOTASSIUM [Concomitant]
  6. JANUVIA [Concomitant]
  7. COMBIVENT [Concomitant]
  8. CARVEDILOL [Concomitant]
  9. METOLAZONE [Concomitant]
  10. CARTIA XT [Concomitant]
  11. TRAMADOL HCL [Concomitant]
  12. SIMVASTATIN [Concomitant]
  13. PREDNISONE [Concomitant]
  14. HYDROXYZINE HCL [Concomitant]
  15. NEXIUM [Concomitant]
  16. POTASSIUM CHLORIDE [Concomitant]
  17. XOPENEX [Concomitant]
  18. LANTUS [Concomitant]
  19. NITROFURANTOIN-MACRO [Concomitant]
  20. ALPHAGAN [Concomitant]
  21. LISINOPRIL [Concomitant]
  22. VIGAMOX [Concomitant]
  23. IPRATROPIUM [Concomitant]
  24. CLINDAMYCIN HCL [Concomitant]
  25. HUMALOG [Concomitant]
  26. CEFADROXIL [Concomitant]
  27. FUROSEMIDE [Concomitant]
  28. CLOPIDOGREL BISULFATE [Concomitant]
  29. TOPROL-XL [Concomitant]

REACTIONS (5)
  - ANXIETY [None]
  - DEPRESSED MOOD [None]
  - ECONOMIC PROBLEM [None]
  - SOCIAL AVOIDANT BEHAVIOUR [None]
  - UNEVALUABLE EVENT [None]
